FAERS Safety Report 7724487-1 (Version None)
Quarter: 2011Q3

REPORT INFORMATION
  Report Type: 
  Country: None (occurrence: None)
  Receive Date: 20110829
  Receipt Date: 20110811
  Transmission Date: 20111222
  Serious: Yes (Hospitalization, Other)
  Sender: FDA-Public Use
  Company Number: 2011P1008315

PATIENT
  Age: 90 Year
  Sex: Male
  Weight: 53.5244 kg

DRUGS (7)
  1. DILANTIN [Suspect]
     Indication: CONVULSION
     Dosage: X1
     Dates: start: 20110701, end: 20110701
  2. SPIRONOLACTONE [Concomitant]
  3. IRON SUPPLEMENTS [Concomitant]
  4. PHENYTOIN SODIUM [Suspect]
     Indication: CONVULSION
     Dosage: 400 MG;HS ; 600 MG;HS ; 500 MG;HS
     Dates: end: 20110801
  5. PHENYTOIN SODIUM [Suspect]
     Indication: CONVULSION
     Dosage: 400 MG;HS ; 600 MG;HS ; 500 MG;HS
     Dates: start: 20110810
  6. PHENYTOIN SODIUM [Suspect]
     Indication: CONVULSION
     Dosage: 400 MG;HS ; 600 MG;HS ; 500 MG;HS
     Dates: start: 20110601
  7. VANCOMYCIN [Concomitant]

REACTIONS (4)
  - CONVULSION [None]
  - ASTHENIA [None]
  - FALL [None]
  - MUSCULAR WEAKNESS [None]
